FAERS Safety Report 4582727-4 (Version None)
Quarter: 2005Q1

REPORT INFORMATION
  Report Type: 
  Country: None (occurrence: None)
  Receive Date: 20050125
  Receipt Date: 20040127
  Transmission Date: 20050727
  Serious: Yes (Other)
  Sender: FDA-Public Use
  Company Number: PHEH2003US10599

PATIENT
  Age: 53 Year
  Sex: Female

DRUGS (3)
  1. SANDOSTATIN LAR [Suspect]
     Indication: ACROMEGALY
     Dosage: 20 MG, QMO, INJECTION NOS
     Dates: start: 20031001, end: 20040118
  2. SANDOSTATIN [Suspect]
     Indication: ACROMEGALY
     Dosage: 200 UG, TID, INJECTION NOS
     Dates: start: 19940101, end: 20031001
  3. PARLODEL [Concomitant]

REACTIONS (3)
  - DISEASE PROGRESSION [None]
  - SWOLLEN TONGUE [None]
  - THROAT TIGHTNESS [None]
